FAERS Safety Report 8670206 (Version 2)
Quarter: 2012Q4

REPORT INFORMATION
  Report Type: 
  Country: JP (occurrence: JP)
  Receive Date: 20120718
  Receipt Date: 20121022
  Transmission Date: 20130627
  Serious: No
  Sender: FDA-Public Use
  Company Number: JP-009507513-1207JPN005091

PATIENT

DRUGS (2)
  1. PEGINTRON [Suspect]
     Indication: HEPATITIS C
     Dosage: 80 Microgram, qw
     Route: 058
     Dates: start: 20110506, end: 20120329
  2. REBETOL [Suspect]
     Indication: HEPATITIS C
     Dosage: 300 mg, bid
     Route: 048
     Dates: start: 20110506, end: 20120404

REACTIONS (1)
  - Skin ulcer [Recovered/Resolved]
